FAERS Safety Report 4597495-X (Version None)
Quarter: 2005Q1

REPORT INFORMATION
  Report Type: 
  Country: None (occurrence: None)
  Receive Date: 20050303
  Receipt Date: 20050221
  Transmission Date: 20050727
  Serious: Yes (Other)
  Sender: FDA-Public Use
  Company Number: GB-ROCHE-396115

PATIENT
  Age: 96 Year
  Sex: Female
  Weight: 46.3 kg

DRUGS (6)
  1. TAMIFLU [Suspect]
     Indication: INFLUENZA
     Route: 048
     Dates: start: 20050126, end: 20050131
  2. SYMMETREL [Concomitant]
     Dosage: TAKEN IN THE MORNING.
  3. NEO-MERCAZOLE TAB [Concomitant]
  4. SEROQUEL [Concomitant]
     Dosage: TAKEN AT NIGHT.
  5. SINEMET [Concomitant]
     Dosage: DOSE: 25/100
  6. VITAMIN B COMPLEX CAP [Concomitant]

REACTIONS (3)
  - CHROMATURIA [None]
  - PROTEINURIA [None]
  - URINE ODOUR ABNORMAL [None]
